FAERS Safety Report 9262408 (Version 1)
Quarter: 2013Q2

REPORT INFORMATION
  Report Type: Spontaneous
  Country: US (occurrence: None)
  Receive Date: 20130425
  Receipt Date: 20130425
  Transmission Date: 20140414
  Serious: Yes (Death)
  Sender: FDA-Public Use
  Company Number: 2013ST000100

PATIENT
  Age: 57 Year
  Sex: Female

DRUGS (1)
  1. METFORMIN [Suspect]
     Indication: HYPERGLYCAEMIA

REACTIONS (7)
  - Myocardial infarction [None]
  - Respiratory failure [None]
  - Ventricular tachycardia [None]
  - Cardiac arrest [None]
  - Hypotension [None]
  - Lactic acidosis [None]
  - Haemodialysis [None]
